FAERS Safety Report 18639352 (Version 2)
Quarter: 2021Q3

REPORT INFORMATION
  Report Type: Spontaneous
  Country: IN (occurrence: IN)
  Receive Date: 20201219
  Receipt Date: 20210901
  Transmission Date: 20211014
  Serious: Yes (Hospitalization, Other)
  Sender: FDA-Public Use
  Company Number: IN-SA-2020SA355915

PATIENT
  Age: 40 Year
  Sex: Male

DRUGS (11)
  1. RIFAMPICIN [Suspect]
     Active Substance: RIFAMPIN
     Indication: PULMONARY TUBERCULOSIS
     Dosage: 600 MG DAILY
  2. BECLOMETASONE DIPROPIONATE [Interacting]
     Active Substance: BECLOMETHASONE DIPROPIONATE
     Indication: ASTHMA
     Dosage: 800 UG, QD
     Route: 055
  3. BECLOMETASONE DIPROPIONATE [Interacting]
     Active Substance: BECLOMETHASONE DIPROPIONATE
     Dosage: 1600 UG, QD
     Route: 055
  4. NIFEDIPINE. [Concomitant]
     Active Substance: NIFEDIPINE
     Indication: HYPERTENSION
  5. PREDNISOLONE. [Interacting]
     Active Substance: PREDNISOLONE
     Indication: ASTHMA
     Dosage: UNK UNK, QD; 15 TO 20 MG/DAY
     Route: 048
  6. THEOPHYLLINE [Concomitant]
     Active Substance: THEOPHYLLINE ANHYDROUS
     Indication: ASTHMA
     Dosage: 600 MG, QD; SUSTAINED RELEASE
  7. PREDNISOLONE. [Interacting]
     Active Substance: PREDNISOLONE
     Dosage: 40 MG, QD
  8. SALBUTAMOL [Concomitant]
     Active Substance: ALBUTEROL
     Dosage: UNK; NEBULIZED
  9. PREDNISOLONE. [Interacting]
     Active Substance: PREDNISOLONE
     Dosage: 80 MG, QD
  10. PREDNISOLONE. [Interacting]
     Active Substance: PREDNISOLONE
     Dosage: 10 MG, QD
     Route: 048
  11. SALBUTAMOL [Concomitant]
     Active Substance: ALBUTEROL
     Indication: ASTHMA
     Dosage: 800 UG, QD
     Route: 055

REACTIONS (11)
  - Bronchospasm [Recovered/Resolved]
  - Pulmonary tuberculosis [Recovering/Resolving]
  - Wheezing [Recovering/Resolving]
  - Pyrexia [Recovering/Resolving]
  - Cough [Recovering/Resolving]
  - Decreased appetite [Recovering/Resolving]
  - Asthma [Recovering/Resolving]
  - Rhonchi [Recovering/Resolving]
  - Weight decreased [Recovering/Resolving]
  - Drug interaction [Recovering/Resolving]
  - Dyspnoea [Recovering/Resolving]
